FAERS Safety Report 17591650 (Version 1)
Quarter: 2020Q1

REPORT INFORMATION
  Report Type: Spontaneous
  Country: US (occurrence: US)
  Receive Date: 20200327
  Receipt Date: 20200327
  Transmission Date: 20200409
  Serious: Yes (Other)
  Sender: FDA-Public Use
  Company Number: None

PATIENT
  Age: 17 Year
  Sex: Female

DRUGS (2)
  1. DORYX MPC [Suspect]
     Active Substance: DOXYCYCLINE HYCLATE
     Route: 048
     Dates: start: 20200131, end: 20200228
  2. FABIOR [Suspect]
     Active Substance: TAZAROTENE
     Indication: ACNE
     Dosage: ?          OTHER FREQUENCY:3 TIMES A WEEK;?
     Route: 061
     Dates: start: 20200131, end: 20200228

REACTIONS (2)
  - Therapy cessation [None]
  - Rash [None]

NARRATIVE: CASE EVENT DATE: 20200327
